FAERS Safety Report 17765955 (Version 2)
Quarter: 2020Q2

REPORT INFORMATION
  Report Type: Report from Study
  Country: TH (occurrence: TH)
  Receive Date: 20200511
  Receipt Date: 20200617
  Transmission Date: 20200714
  Serious: Yes (Other)
  Sender: FDA-Public Use
  Company Number: NVSC2020TH124269

PATIENT
  Age: 48 Year
  Sex: Female

DRUGS (3)
  1. AROMASIN [Concomitant]
     Active Substance: EXEMESTANE
     Indication: PRODUCT USED FOR UNKNOWN INDICATION
     Dosage: 25 MG, QD (1 TAB DAILY)
     Route: 048
     Dates: start: 20200506
  2. AFINITOR [Suspect]
     Active Substance: EVEROLIMUS
     Indication: BREAST CANCER METASTATIC
  3. AFINITOR [Suspect]
     Active Substance: EVEROLIMUS
     Indication: BREAST CANCER
     Dosage: 10 MG
     Route: 048

REACTIONS (4)
  - Hepatic enzyme increased [Unknown]
  - Infection [Unknown]
  - Hepatitis E [Unknown]
  - Hepatitis [Unknown]

NARRATIVE: CASE EVENT DATE: 20200505
